FAERS Safety Report 15096499 (Version 1)
Quarter: 2018Q2

REPORT INFORMATION
  Report Type: Spontaneous
  Country: US (occurrence: US)
  Receive Date: 20180610
  Receipt Date: 20180610
  Transmission Date: 20180711
  Serious: Yes (Other)
  Sender: FDA-Public Use
  Company Number: None

PATIENT
  Age: 57 Year
  Sex: Female

DRUGS (13)
  1. IBUPROFEN. [Concomitant]
     Active Substance: IBUPROFEN
     Dates: start: 20180608
  2. PROGESTERONE. [Concomitant]
     Active Substance: PROGESTERONE
     Dates: start: 20170627
  3. FISH OIL [Concomitant]
     Active Substance: FISH OIL
     Dates: start: 20170627
  4. PREDNISONE. [Concomitant]
     Active Substance: PREDNISONE
     Dates: start: 20171221
  5. ARAVA [Concomitant]
     Active Substance: LEFLUNOMIDE
     Dates: start: 20170627
  6. PANTOPRAZOLE [Concomitant]
     Active Substance: PANTOPRAZOLE
     Dates: start: 20170627
  7. CALCIUM +D [Concomitant]
     Active Substance: CALCIUM\VITAMIN D
     Dates: start: 20170627
  8. RED YEAST [Concomitant]
     Active Substance: YEAST
     Dates: start: 20180608
  9. SYNTHROID [Concomitant]
     Active Substance: LEVOTHYROXINE SODIUM
     Dates: start: 20170627
  10. XELJANZ XR [Suspect]
     Active Substance: TOFACITINIB CITRATE
     Indication: RHEUMATOID ARTHRITIS
     Route: 048
     Dates: start: 20170802
  11. CALCIUM +D3 [Concomitant]
     Active Substance: CALCIUM\CHOLECALCIFEROL
     Dates: start: 20180608
  12. EVAMIST [Concomitant]
     Active Substance: ESTRADIOL
     Dates: start: 20170627
  13. LEFLUNOMIDE. [Concomitant]
     Active Substance: LEFLUNOMIDE
     Dates: start: 20180124

REACTIONS (3)
  - Pain in extremity [None]
  - Spinal operation [None]
  - Blood cholesterol increased [None]
